FAERS Safety Report 10146467 (Version 3)
Quarter: 2014Q3

REPORT INFORMATION
  Report Type: Spontaneous
  Country: US (occurrence: US)
  Receive Date: 20140501
  Receipt Date: 20140703
  Transmission Date: 20150326
  Serious: Yes (Other)
  Sender: FDA-Public Use
  Company Number: US-BAYER-2014-062278

PATIENT
  Age: 26 Year
  Sex: Female

DRUGS (1)
  1. MIRENA [Suspect]
     Active Substance: LEVONORGESTREL
     Dosage: 20 MCG/24HR, CONT
     Route: 015
     Dates: start: 20100127, end: 20140523

REACTIONS (4)
  - Complication of device removal [Recovering/Resolving]
  - Chlamydia test positive [None]
  - Device difficult to use [Recovering/Resolving]
  - Device breakage [Recovering/Resolving]

NARRATIVE: CASE EVENT DATE: 20140409
